FAERS Safety Report 15113813 (Version 5)
Quarter: 2018Q4

REPORT INFORMATION
  Report Type: Spontaneous
  Country: US (occurrence: US)
  Receive Date: 20180706
  Receipt Date: 20181123
  Transmission Date: 20190204
  Serious: Yes (Other)
  Sender: FDA-Public Use
  Company Number: US-PFIZER INC-2018274160

PATIENT
  Age: 59 Year
  Sex: Female

DRUGS (2)
  1. XELJANZ XR [Suspect]
     Active Substance: TOFACITINIB CITRATE
     Indication: RHEUMATOID ARTHRITIS
     Dosage: 11 MG, 1X/DAY (ONCE PER DAY)
     Route: 048
     Dates: end: 20180630
  2. XELJANZ XR [Suspect]
     Active Substance: TOFACITINIB CITRATE
     Dosage: 11 MG, UNK
     Dates: start: 2018, end: 2018

REACTIONS (5)
  - Erythema [Recovering/Resolving]
  - Blister infected [Recovering/Resolving]
  - Skin lesion [Recovering/Resolving]
  - Hypersensitivity [Unknown]
  - Foot fracture [Unknown]

NARRATIVE: CASE EVENT DATE: 2018
